FAERS Safety Report 9513480 (Version 1)
Quarter: 2013Q3

REPORT INFORMATION
  Report Type: Spontaneous
  Country: US (occurrence: US)
  Receive Date: 20130910
  Receipt Date: 20130910
  Transmission Date: 20140515
  Serious: Yes (Hospitalization, Other)
  Sender: FDA-Public Use
  Company Number: US-TARO-2013P1004857

PATIENT
  Age: 77 Year
  Sex: Female
  Weight: 62.6 kg

DRUGS (6)
  1. WARFARIN SODIUM TABLETS USP 5MG [Suspect]
     Route: 048
     Dates: start: 2006, end: 20130412
  2. WARFARIN SODIUM TABLETS USP 5MG [Suspect]
     Route: 048
     Dates: start: 2006, end: 20130412
  3. WARFARIN SODIUM TABLETS USP 5MG [Suspect]
     Dates: start: 20130418
  4. CALCIUM + VITAMIN D [Concomitant]
  5. VITAMIN D [Concomitant]
  6. BABY ASPIRIN [Concomitant]
     Dates: end: 20130412

REACTIONS (1)
  - Necrosis [Recovering/Resolving]
